FAERS Safety Report 4829182-4 (Version None)
Quarter: 2005Q4

REPORT INFORMATION
  Report Type: 
  Country: None (occurrence: None)
  Receive Date: 20051027
  Receipt Date: 20050309
  Transmission Date: 20060501
  Serious: Yes (Other)
  Sender: FDA-Public Use
  Company Number: HQWYE589825AUG04

PATIENT
  Sex: Female
  Weight: 54.48 kg

DRUGS (3)
  1. PREMARIN [Suspect]
     Dosage: ORAL
     Route: 048
     Dates: start: 19940801, end: 19970901
  2. PREMPRO [Suspect]
     Indication: OSTEOPOROSIS PROPHYLAXIS
     Dosage: UNSPECIFIED; ORAL
     Route: 048
     Dates: start: 19970901, end: 19980201
  3. PROVERA [Suspect]
     Dates: start: 19900101, end: 19970901

REACTIONS (1)
  - BREAST CANCER [None]
